FAERS Safety Report 15665171 (Version 1)
Quarter: 2018Q4

REPORT INFORMATION
  Report Type: Spontaneous
  Country: US (occurrence: US)
  Receive Date: 20181128
  Receipt Date: 20181128
  Transmission Date: 20190205
  Serious: Yes (Hospitalization)
  Sender: FDA-Public Use
  Company Number: None

PATIENT
  Sex: Male

DRUGS (8)
  1. HUMIRA [Suspect]
     Active Substance: ADALIMUMAB
     Indication: PSORIATIC ARTHROPATHY
     Dosage: ?          OTHER FREQUENCY:QOW;?
     Route: 058
     Dates: start: 20180320
  2. XANAX [Concomitant]
     Active Substance: ALPRAZOLAM
  3. MOTRIN [Concomitant]
     Active Substance: IBUPROFEN
  4. LIPITOR [Concomitant]
     Active Substance: ATORVASTATIN CALCIUM
  5. ALEVE [Concomitant]
     Active Substance: NAPROXEN SODIUM
  6. HYDROCLOROT [Concomitant]
  7. VASCEPA [Concomitant]
     Active Substance: ICOSAPENT ETHYL
  8. ZYRTEC ALLGY [Concomitant]

REACTIONS (2)
  - Pneumonia [None]
  - Product dose omission [None]
